FAERS Safety Report 10499753 (Version 1)
Quarter: 2014Q4

REPORT INFORMATION
  Report Type: Spontaneous
  Country: US (occurrence: US)
  Receive Date: 20141006
  Receipt Date: 20141006
  Transmission Date: 20150528
  Serious: No
  Sender: FDA-Public Use
  Company Number: US-AMGEN INC.-USASP2014064396

PATIENT
  Age: 59 Year
  Sex: Female

DRUGS (1)
  1. PROLIA [Suspect]
     Active Substance: DENOSUMAB
     Indication: OSTEOPOROSIS POSTMENOPAUSAL
     Dosage: UNK
     Route: 065
     Dates: start: 201303

REACTIONS (15)
  - Gait disturbance [Unknown]
  - Sensitivity of teeth [Not Recovered/Not Resolved]
  - Plantar fasciitis [Unknown]
  - Tooth disorder [Unknown]
  - Mastication disorder [Not Recovered/Not Resolved]
  - Back pain [Unknown]
  - Weight increased [Unknown]
  - Influenza like illness [Unknown]
  - Pruritus [Unknown]
  - Rash [Recovered/Resolved]
  - Arthralgia [Unknown]
  - Asthenia [Unknown]
  - Gingival bleeding [Unknown]
  - Activities of daily living impaired [Unknown]
  - Myalgia [Unknown]

NARRATIVE: CASE EVENT DATE: 2013
